FAERS Safety Report 5947658-3 (Version None)
Quarter: 2008Q4

REPORT INFORMATION
  Report Type: 
  Country: None (occurrence: None)
  Receive Date: 20081107
  Receipt Date: 20081023
  Transmission Date: 20090506
  Serious: Yes (Other)
  Sender: FDA-Public Use
  Company Number: 2008S1019251

PATIENT
  Age: 31 Year
  Sex: Male
  Weight: 116 kg

DRUGS (4)
  1. BROMAZEPAM (BROMAZEPAM) [Suspect]
     Indication: DRUG USE FOR UNKNOWN INDICATION
     Dosage: 120 MG; ; ORAL
     Route: 048
  2. ACETYLCYSTEINE [Suspect]
     Indication: DRUG USE FOR UNKNOWN INDICATION
     Dosage: 1800 MG; ; ORAL
     Route: 048
  3. IBUPROFEN [Suspect]
     Indication: DRUG USE FOR UNKNOWN INDICATION
     Dosage: 6 GM; ; ORAL
     Route: 048
  4. ACETAMINOPHEN [Suspect]
     Indication: DRUG USE FOR UNKNOWN INDICATION
     Dosage: 10 GM; ; ORAL
     Route: 048

REACTIONS (4)
  - GASTROINTESTINAL SOUNDS ABNORMAL [None]
  - INTENTIONAL OVERDOSE [None]
  - SOMNOLENCE [None]
  - STUPOR [None]
